FAERS Safety Report 25753654 (Version 2)
Quarter: 2025Q3

REPORT INFORMATION
  Report Type: Spontaneous
  Country: EU (occurrence: EU)
  Receive Date: 20250903
  Receipt Date: 20250922
  Transmission Date: 20251020
  Serious: Yes (Other)
  Sender: ROCHE
  Company Number: None

PATIENT
  Age: 36 Year
  Sex: Male

DRUGS (9)
  1. RITUXIMAB [Suspect]
     Active Substance: RITUXIMAB
     Indication: Glomerulonephritis
     Route: 065
     Dates: start: 20250730, end: 20250730
  2. ALLOPURINOL [Concomitant]
     Active Substance: ALLOPURINOL
  3. ENALAPRIL [Concomitant]
     Active Substance: ENALAPRIL
  4. DAPAGLIFLOZIN [Concomitant]
     Active Substance: DAPAGLIFLOZIN
  5. SERTRALINE HYDROCHLORIDE [Concomitant]
     Active Substance: SERTRALINE HYDROCHLORIDE
  6. Mykofenolsyra [Concomitant]
  7. EPLERENONE [Concomitant]
     Active Substance: EPLERENONE
  8. PREDNISOLONE [Concomitant]
     Active Substance: PREDNISOLONE
  9. Kolekalciferol [Concomitant]

REACTIONS (1)
  - Infusion related reaction [Unknown]

NARRATIVE: CASE EVENT DATE: 20250730
